FAERS Safety Report 25942158 (Version 1)
Quarter: 2025Q4

REPORT INFORMATION
  Report Type: Spontaneous
  Country: EU (occurrence: EU)
  Receive Date: 20251020
  Receipt Date: 20251020
  Transmission Date: 20260118
  Serious: Yes (Hospitalization)
  Sender: SK LIFE SCIENCE
  Company Number: EU-MEDICOMINT-2025-039205

PATIENT

DRUGS (3)
  1. XCOPRI [Suspect]
     Active Substance: CENOBAMATE
     Indication: Epilepsy
     Dosage: THE FIRST IN THE NEUROLOGY WARD, AND LATER IN THE FOLLOW-UP CARE DEPARTMENT, FROM 10TH OF JUNE 2025,
     Route: 048
     Dates: start: 20250610
  2. BRIVIACT [Concomitant]
     Active Substance: BRIVARACETAM
     Indication: Epilepsy
     Dosage: AFTER CONSULTATION WITH FNUSA, BRIVARACETAM WAS FIRST REDUCED FROM 100-0-100 TO 100-0-50.
     Route: 048
  3. VALPROIC ACID [Concomitant]
     Active Substance: VALPROIC ACID
     Indication: Product used for unknown indication
     Dosage: UPON ARRIVAL AT THE EMERGENCY DEPARTMENT, THEPATIENT WAS TAKING DEPAKINE 1000-0-1000.
     Route: 048

REACTIONS (9)
  - Seizure [Recovered/Resolved]
  - Tremor [Recovered/Resolved]
  - Hyponatraemia [Recovered/Resolved]
  - Dizziness [Recovered/Resolved]
  - Gait disturbance [Recovered/Resolved]
  - Somnolence [Recovered/Resolved]
  - Dysarthria [Recovered/Resolved]
  - Diplopia [Recovered/Resolved]
  - Asthenia [Recovered/Resolved]
